FAERS Safety Report 8924622 (Version 3)
Quarter: 2013Q1

REPORT INFORMATION
  Report Type: Spontaneous
  Country: US (occurrence: US)
  Receive Date: 20121126
  Receipt Date: 20130205
  Transmission Date: 20140127
  Serious: No
  Sender: FDA-Public Use
  Company Number: US-009507513-1210USA014522

PATIENT
  Age: 2 Year
  Sex: Male
  Weight: 12.25 kg

DRUGS (2)
  1. CLARITIN CHEWABLE TABLETS [Suspect]
     Indication: RHINORRHOEA
     Dosage: 5 MG, ONCE
     Route: 048
     Dates: start: 20121017, end: 20121017
  2. VITAMINS (UNSPECIFIED) [Concomitant]
     Indication: PRODUCT USED FOR UNKNOWN INDICATION
     Dosage: UNK, UNKNOWN

REACTIONS (5)
  - Mental disorder [Recovering/Resolving]
  - Abnormal behaviour [Recovering/Resolving]
  - Anger [Recovering/Resolving]
  - Crying [Recovering/Resolving]
  - Frustration [Recovering/Resolving]
